FAERS Safety Report 17415773 (Version 1)
Quarter: 2020Q1

REPORT INFORMATION
  Report Type: Spontaneous
  Country: US (occurrence: US)
  Receive Date: 20200213
  Receipt Date: 20200213
  Transmission Date: 20200409
  Serious: No
  Sender: FDA-Public Use
  Company Number: US-TEVA-2020-US-1183543

PATIENT
  Sex: Female

DRUGS (2)
  1. PREDNISONE. [Suspect]
     Active Substance: PREDNISONE
     Dates: start: 20190628
  2. PREDNISONE. [Suspect]
     Active Substance: PREDNISONE
     Dates: start: 20191222

REACTIONS (5)
  - Weight decreased [Not Recovered/Not Resolved]
  - Alopecia [Not Recovered/Not Resolved]
  - Red blood cell sedimentation rate increased [Unknown]
  - Personality change [Not Recovered/Not Resolved]
  - Tremor [Not Recovered/Not Resolved]
